FAERS Safety Report 5884543-X (Version None)
Quarter: 2008Q3

REPORT INFORMATION
  Report Type: 
  Country: None (occurrence: None)
  Receive Date: 20080916
  Receipt Date: 20080915
  Transmission Date: 20090109
  Serious: Yes (Hospitalization)
  Sender: FDA-Public Use
  Company Number: FR-SP-2008-02783

PATIENT
  Age: 58 Year
  Sex: Male

DRUGS (2)
  1. IMMUCYST [Suspect]
     Indication: BLADDER CANCER
     Dosage: 1/3 DOSE (PROTOCOLE CHU ROUEN)
     Route: 065
  2. IMMUCYST [Suspect]
     Dosage: 1/3 DOSE (PROTOCOLE CHU ROUEN)
     Route: 065

REACTIONS (2)
  - INCORRECT DRUG DOSAGE FORM ADMINISTERED [None]
  - URETHRAL STENOSIS [None]
